FAERS Safety Report 5578946-0 (Version None)
Quarter: 2008Q1

REPORT INFORMATION
  Report Type: 
  Country: None (occurrence: None)
  Receive Date: 20080102
  Receipt Date: 20071228
  Transmission Date: 20080703
  Serious: Yes (Death)
  Sender: FDA-Public Use
  Company Number: JP-ASTRAZENECA-2007AP08170

PATIENT
  Age: 71 Year
  Sex: Male

DRUGS (6)
  1. SEROQUEL [Suspect]
     Route: 048
     Dates: end: 20071217
  2. TROXIPIDE [Suspect]
  3. RINDERON [Concomitant]
  4. TAKEPRON [Concomitant]
     Route: 048
  5. DUROTEP [Concomitant]
  6. RISPERDAL [Concomitant]
     Route: 048

REACTIONS (2)
  - HEPATIC FUNCTION ABNORMAL [None]
  - JAUNDICE [None]
